FAERS Safety Report 18955669 (Version 1)
Quarter: 2021Q1

REPORT INFORMATION
  Report Type: Spontaneous
  Country: US (occurrence: US)
  Receive Date: 20210302
  Receipt Date: 20210302
  Transmission Date: 20210420
  Serious: No
  Sender: FDA-Public Use
  Company Number: US-SA-2021SA065267

PATIENT
  Sex: Female

DRUGS (9)
  1. NAPROXEN. [Concomitant]
     Active Substance: NAPROXEN
  2. SOL [Concomitant]
  3. DUPIXENT [Suspect]
     Active Substance: DUPILUMAB
     Indication: DERMATITIS
     Dosage: 300 MG, QOW
     Route: 058
     Dates: start: 20200513
  4. ESTRADIOL. [Concomitant]
     Active Substance: ESTRADIOL
  5. TRAMADOL. [Concomitant]
     Active Substance: TRAMADOL
  6. ESZOPICLONE. [Concomitant]
     Active Substance: ESZOPICLONE
  7. TIROSINT [Concomitant]
     Active Substance: LEVOTHYROXINE SODIUM
  8. TRIAMCINOLON [TRIAMCINOLONE ACETONIDE] [Concomitant]
  9. PROGESTERONE. [Concomitant]
     Active Substance: PROGESTERONE

REACTIONS (2)
  - Product use in unapproved indication [Unknown]
  - Dermatitis [Not Recovered/Not Resolved]

NARRATIVE: CASE EVENT DATE: 20200513
